FAERS Safety Report 23064386 (Version 1)
Quarter: 2023Q4

REPORT INFORMATION
  Report Type: Spontaneous
  Country: US (occurrence: None)
  Receive Date: 20231011
  Receipt Date: 20231011
  Transmission Date: 20240110
  Serious: Yes (Other)
  Sender: FDA-Public Use
  Company Number: None

PATIENT
  Age: 59 Year
  Sex: Male

DRUGS (1)
  1. VTAMA [Suspect]
     Active Substance: TAPINAROF
     Indication: Psoriasis
     Dosage: FREQUENCY : DAILY;?
     Dates: start: 20230726, end: 20230912

REACTIONS (2)
  - Keratoacanthoma [None]
  - Squamous cell carcinoma [None]

NARRATIVE: CASE EVENT DATE: 20230912
